FAERS Safety Report 19806689 (Version 1)
Quarter: 2021Q3

REPORT INFORMATION
  Report Type: Spontaneous
  Country: US (occurrence: US)
  Receive Date: 20210908
  Receipt Date: 20210908
  Transmission Date: 20211014
  Serious: No
  Sender: FDA-Public Use
  Company Number: US-BAYER-2021-202149

PATIENT
  Age: 48 Year

DRUGS (2)
  1. NICOTROL [Concomitant]
     Active Substance: NICOTINE
     Dosage: INHALE 6?16 CARTRIDGES A DAY FOR UP TO 12 WEEKS
  2. ALEVE [Suspect]
     Active Substance: NAPROXEN SODIUM
     Dosage: UNK

REACTIONS (1)
  - Palpitations [Unknown]

NARRATIVE: CASE EVENT DATE: 20210824
